FAERS Safety Report 10193876 (Version 1)
Quarter: 2014Q2

REPORT INFORMATION
  Report Type: Spontaneous
  Country: US (occurrence: US)
  Receive Date: 20140524
  Receipt Date: 20140524
  Transmission Date: 20141212
  Serious: No
  Sender: FDA-Public Use
  Company Number: US-SANOFI-AVENTIS-2013SA071642

PATIENT
  Age: 62 Year
  Sex: Male

DRUGS (2)
  1. LANTUS SOLOSTAR [Suspect]
     Indication: TYPE 2 DIABETES MELLITUS
     Dosage: DOSE : 37 CLICKS
     Route: 051
  2. SOLOSTAR [Suspect]

REACTIONS (4)
  - Hypersensitivity [Unknown]
  - Gastric disorder [Unknown]
  - Sinus disorder [Unknown]
  - Vision blurred [Unknown]
